FAERS Safety Report 8524184-9 (Version None)
Quarter: 2012Q3

REPORT INFORMATION
  Report Type: 
  Country: None (occurrence: None)
  Receive Date: 20120720
  Receipt Date: 20120716
  Transmission Date: 20120928
  Serious: Yes (Other)
  Sender: FDA-Public Use
  Company Number: US-PFIZER INC-2012142743

PATIENT
  Sex: Female

DRUGS (3)
  1. PREMARIN [Suspect]
     Dosage: UNK
  2. LIPITOR [Suspect]
     Dosage: UNK
  3. GLUCOTROL XL [Suspect]
     Dosage: UNK

REACTIONS (10)
  - WEIGHT DECREASED [None]
  - BLOOD CHOLESTEROL INCREASED [None]
  - BRAIN NEOPLASM [None]
  - HEAD INJURY [None]
  - MEMORY IMPAIRMENT [None]
  - HYPERTENSION [None]
  - FALL [None]
  - FLATULENCE [None]
  - BALANCE DISORDER [None]
  - TYPE 2 DIABETES MELLITUS [None]
